FAERS Safety Report 11552985 (Version 2)
Quarter: 2015Q4

REPORT INFORMATION
  Report Type: Spontaneous
  Country: US (occurrence: US)
  Receive Date: 20150925
  Receipt Date: 20151019
  Transmission Date: 20160304
  Serious: Yes (Hospitalization, Other)
  Sender: FDA-Public Use
  Company Number: US-BAYER-2015-430254

PATIENT
  Age: 23 Year
  Sex: Female

DRUGS (1)
  1. MIRENA [Suspect]
     Active Substance: LEVONORGESTREL
     Indication: CONTRACEPTION
     Dosage: 20 MCG/24HR, CONT
     Route: 015
     Dates: start: 20120510, end: 20131014

REACTIONS (10)
  - Pain [None]
  - Habitual abortion [None]
  - Genital haemorrhage [None]
  - Scar [None]
  - Injury [None]
  - Uterine perforation [None]
  - Device dislocation [None]
  - Maternal exposure before pregnancy [None]
  - Depression [None]
  - Pelvic pain [None]

NARRATIVE: CASE EVENT DATE: 2013
